FAERS Safety Report 9664559 (Version 1)
Quarter: 2013Q4

REPORT INFORMATION
  Report Type: Report from Study
  Country: US (occurrence: US)
  Receive Date: 20131101
  Receipt Date: 20131101
  Transmission Date: 20140711
  Serious: Yes (Hospitalization, Other)
  Sender: FDA-Public Use
  Company Number: US-ABBVIE-13P-163-1163599-00

PATIENT
  Age: 42 Year
  Sex: Male

DRUGS (11)
  1. HUMIRA [Suspect]
     Indication: PSORIATIC ARTHROPATHY
     Dates: start: 2008
  2. HUMIRA [Suspect]
     Indication: PSORIASIS
  3. TOPROL [Concomitant]
     Indication: HYPERTENSION
  4. LISINOPRIL [Concomitant]
     Indication: HYPERTENSION
  5. HYDROCHLOROTHIAZIDE [Concomitant]
     Indication: HYPERTENSION
  6. AMLODIPINE [Concomitant]
     Indication: HYPERTENSION
  7. ALLOPURINOL [Concomitant]
     Indication: GOUT
  8. MULTIVITAMIN [Concomitant]
     Indication: VITAMIN SUPPLEMENTATION
  9. FOLIC ACID [Concomitant]
     Indication: PSORIATIC ARTHROPATHY
  10. RANITIDINE [Concomitant]
     Indication: GASTROOESOPHAGEAL REFLUX DISEASE
  11. RANITIDINE [Concomitant]
     Indication: HIATUS HERNIA

REACTIONS (13)
  - Carotid arteriosclerosis [Recovering/Resolving]
  - Carotid artery occlusion [Unknown]
  - Dizziness [Recovered/Resolved]
  - Wound necrosis [Recovered/Resolved]
  - Wound infection [Recovered/Resolved]
  - Arthropod bite [Recovered/Resolved]
  - Wound complication [Recovered/Resolved]
  - Laceration [Recovered/Resolved]
  - Skin atrophy [Recovering/Resolving]
  - Skin haemorrhage [Recovering/Resolving]
  - Psoriasis [Recovering/Resolving]
  - Wrong technique in drug usage process [Unknown]
  - Drug dose omission [Unknown]
